FAERS Safety Report 7308614-6 (Version None)
Quarter: 2011Q1

REPORT INFORMATION
  Report Type: 
  Country: None (occurrence: None)
  Receive Date: 20110223
  Receipt Date: 20110216
  Transmission Date: 20110831
  Serious: Yes (Life-Threatening, Disabling)
  Sender: FDA-Public Use
  Company Number: JP-ABBOTT-11P-087-0700943-00

PATIENT
  Age: 1 Year
  Weight: 10 kg

DRUGS (14)
  1. SEVOFLURANE [Suspect]
     Indication: ASTHMA
     Dosage: 4-5% DAILY
     Route: 055
     Dates: start: 20091204, end: 20091211
  2. GASTER [Concomitant]
     Indication: GASTROINTESTINAL HAEMORRHAGE
     Route: 042
     Dates: start: 20091204, end: 20091208
  3. INOVAN [Concomitant]
     Indication: CARDIAC FAILURE
     Dosage: 3-9 MCG/KG/MIN DRIP INFUSION
     Dates: start: 20091204, end: 20091213
  4. OMEPRAL [Concomitant]
     Indication: GASTROINTESTINAL HAEMORRHAGE
     Route: 042
     Dates: start: 20091209, end: 20091222
  5. PREDONINE [Concomitant]
     Indication: ASTHMA
     Route: 042
     Dates: start: 20091204, end: 20091228
  6. SULBACILLIN [Concomitant]
     Indication: INFECTION
     Route: 042
     Dates: start: 20091204, end: 20091208
  7. MEROPEN [Concomitant]
     Indication: INFECTION
     Route: 042
     Dates: start: 20091209, end: 20091213
  8. FORANE [Concomitant]
     Indication: ASTHMA
     Route: 055
     Dates: start: 20091207, end: 20091208
  9. SEVOFLURANE [Suspect]
     Dosage: 8%
  10. SOLU-MEDROL [Concomitant]
     Indication: ASTHMA
     Dosage: DRIP INFUSION
     Dates: start: 20091204, end: 20091210
  11. DOBUTREX [Concomitant]
     Indication: CARDIAC FAILURE
     Dosage: DRIP INFUSION
     Dates: start: 20091208, end: 20091211
  12. DORMICUM [Concomitant]
     Indication: SEDATION
     Dosage: DRIP INFUSION
     Dates: start: 20091204, end: 20091204
  13. LASIX [Concomitant]
     Indication: RENAL FAILURE
     Dosage: DRIP INFUSION
     Dates: start: 20091204, end: 20091210
  14. HANP [Concomitant]
     Indication: CARDIAC FAILURE
     Dosage: DRIP INFUSION
     Dates: start: 20091208, end: 20091209

REACTIONS (4)
  - BRAIN HERNIATION [None]
  - CARDIAC FAILURE [None]
  - RENAL FAILURE [None]
  - INTRACRANIAL PRESSURE INCREASED [None]
